FAERS Safety Report 25430686 (Version 1)
Quarter: 2025Q2

REPORT INFORMATION
  Report Type: Spontaneous
  Country: CN (occurrence: CN)
  Receive Date: 20250612
  Receipt Date: 20250612
  Transmission Date: 20250717
  Serious: Yes (Other)
  Sender: BRACCO
  Company Number: CN-BRACCO-2025CN03786

PATIENT
  Age: 75 Year
  Sex: Male

DRUGS (1)
  1. IOPAMIDOL [Suspect]
     Active Substance: IOPAMIDOL
     Indication: Angiocardiogram
     Route: 042
     Dates: start: 20250526, end: 20250526

REACTIONS (2)
  - Delirium [Not Recovered/Not Resolved]
  - Somnolence [Not Recovered/Not Resolved]

NARRATIVE: CASE EVENT DATE: 20250526
